FAERS Safety Report 15231738 (Version 1)
Quarter: 2018Q3

REPORT INFORMATION
  Report Type: Spontaneous
  Country: US (occurrence: US)
  Receive Date: 20180802
  Receipt Date: 20180802
  Transmission Date: 20181010
  Serious: No
  Sender: FDA-Public Use
  Company Number: US-PFIZER INC-2018310156

PATIENT
  Sex: Female

DRUGS (1)
  1. DEPO?MEDROL [Suspect]
     Active Substance: METHYLPREDNISOLONE ACETATE
     Dosage: UNK
     Dates: end: 2015

REACTIONS (6)
  - Loss of personal independence in daily activities [Unknown]
  - Drug effect decreased [Unknown]
  - Sexual dysfunction [Unknown]
  - Gait disturbance [Unknown]
  - Pain [Unknown]
  - Urinary incontinence [Unknown]
